FAERS Safety Report 6239894-6 (Version None)
Quarter: 2009Q2

REPORT INFORMATION
  Report Type: 
  Country: None (occurrence: None)
  Receive Date: 20090623
  Receipt Date: 20090616
  Transmission Date: 20091009
  Serious: Yes (Disabling)
  Sender: FDA-Public Use
  Company Number: US-ELI_LILLY_AND_COMPANY-US200903002406

PATIENT
  Sex: Female
  Weight: 64.399 kg

DRUGS (6)
  1. HUMALOG [Suspect]
     Dosage: UNK, UNK
     Route: 058
     Dates: start: 20010101
  2. HUMALOG [Suspect]
     Dosage: UNK, UNKNOWN
     Route: 058
  3. ACCUPRIL [Concomitant]
     Dosage: 20 MG, UNK
  4. ATENOLOL [Concomitant]
     Dosage: 100 MG, UNK
  5. HYDROCHLOROTHIAZDE TAB [Concomitant]
     Dosage: 25 MG, UNK
  6. LIPITOR [Concomitant]
     Indication: LOW DENSITY LIPOPROTEIN INCREASED
     Dosage: 20 MG, UNK

REACTIONS (7)
  - BLOOD GLUCOSE INCREASED [None]
  - DISABILITY [None]
  - DRUG INEFFECTIVE [None]
  - GOITRE [None]
  - LOW DENSITY LIPOPROTEIN INCREASED [None]
  - NEUROPATHY PERIPHERAL [None]
  - RETINOPATHY [None]
